FAERS Safety Report 15297035 (Version 8)
Quarter: 2021Q4

REPORT INFORMATION
  Report Type: Spontaneous
  Country: JP (occurrence: JP)
  Receive Date: 20180820
  Receipt Date: 20211004
  Transmission Date: 20220303
  Serious: Yes (Hospitalization)
  Sender: FDA-Public Use
  Company Number: JP-SANOFI-2018SA197647

PATIENT
  Age: 19 Month
  Sex: Male
  Weight: 8.2 kg

DRUGS (28)
  1. VIGABATRIN [Suspect]
     Active Substance: VIGABATRIN
     Indication: Infantile spasms
     Dosage: 800 MG DAILY IN TWO DIVIDED DOSES
     Route: 048
     Dates: start: 20170911, end: 20181028
  2. VIGABATRIN [Suspect]
     Active Substance: VIGABATRIN
     Dosage: 300 MG DAILY IN TWO DIVIDED DOSES
     Route: 048
     Dates: start: 20170428, end: 20170506
  3. VIGABATRIN [Suspect]
     Active Substance: VIGABATRIN
     Dosage: 200 MG DAILY IN TWO DIVIDED DOSES.
     Route: 048
     Dates: start: 20170424, end: 20170427
  4. VIGABATRIN [Suspect]
     Active Substance: VIGABATRIN
     Dosage: 400 MG DAILY IN TWO DIVIDED DOSES
     Route: 048
     Dates: start: 20170502, end: 20170507
  5. VIGABATRIN [Suspect]
     Active Substance: VIGABATRIN
     Dosage: 500 MG DAILY IN TWO DIVIDED DOSES
     Route: 048
     Dates: start: 20170508, end: 20170511
  6. VIGABATRIN [Suspect]
     Active Substance: VIGABATRIN
     Dosage: 700 MG DAILY IN TWO DIVIDED DOSES
     Route: 048
     Dates: start: 20170512, end: 20170515
  7. VIGABATRIN [Suspect]
     Active Substance: VIGABATRIN
     Dosage: 750 MG DAILY IN TWO DIVIDED DOSES
     Route: 048
     Dates: start: 20170516, end: 20170521
  8. VIGABATRIN [Suspect]
     Active Substance: VIGABATRIN
     Dosage: 500 MG DAILY IN TWO DIVIDED DOSES
     Route: 048
     Dates: start: 20170522, end: 20170712
  9. VIGABATRIN [Suspect]
     Active Substance: VIGABATRIN
     Dosage: 600 MG DAILY IN TWO DIVIDED DOSES
     Route: 048
     Dates: start: 20170713, end: 20170806
  10. VIGABATRIN [Suspect]
     Active Substance: VIGABATRIN
     Dosage: 700 MG DAILY IN TWO DIVIDED DOSES
     Route: 048
     Dates: start: 20170807, end: 20170910
  11. VIGABATRIN [Suspect]
     Active Substance: VIGABATRIN
     Dosage: 600 MG DAILY IN TWO DIVIDED DOSES
     Route: 048
     Dates: start: 20181029, end: 20181102
  12. VIGABATRIN [Suspect]
     Active Substance: VIGABATRIN
     Dosage: 400 MG DAILY IN TWO DIVIDED DOSES
     Route: 048
     Dates: start: 20181103, end: 20181111
  13. VIGABATRIN [Suspect]
     Active Substance: VIGABATRIN
     Dosage: 600 MG DAILY IN TWO DIVIDED DOSES
     Route: 048
     Dates: start: 20181112
  14. NITRAZEPAM [Suspect]
     Active Substance: NITRAZEPAM
     Indication: Infantile spasms
     Dosage: DAILY DOSE: 2 MG
     Route: 048
     Dates: start: 20180816
  15. VITAMIN B6 [Concomitant]
     Active Substance: PYRIDOXINE HYDROCHLORIDE
     Indication: Infantile spasms
     Dosage: DAILY DOSE: 200 MG
     Route: 048
     Dates: start: 20170414, end: 20170423
  16. BENZOIC ACID [Concomitant]
     Active Substance: BENZOIC ACID
     Indication: Infantile spasms
     Dosage: DAILY DOSE: 500 MG
     Route: 048
     Dates: start: 20170814
  17. DEXTROMETHORPHAN [Concomitant]
     Active Substance: DEXTROMETHORPHAN
     Indication: Infantile spasms
     Dosage: DAILY DOSE: 40 MG
     Route: 048
     Dates: start: 20170921
  18. CARTINE [Concomitant]
     Indication: Prophylaxis
     Dosage: DAILY DOSE: 200 MG
     Route: 048
     Dates: start: 20170831
  19. CARTINE [Concomitant]
     Indication: Investigation
  20. INCREMIN C IRON [Concomitant]
     Indication: Product used for unknown indication
     Dosage: DAILY DOSE: 18 MG
     Route: 048
     Dates: start: 20171006, end: 20180512
  21. PERAMPANEL [Concomitant]
     Active Substance: PERAMPANEL
     Indication: Infantile spasms
     Dosage: DAILY DOSE: 5 MG
     Route: 048
     Dates: start: 20171117
  22. RAMELTEON [Concomitant]
     Active Substance: RAMELTEON
     Indication: Infantile spasms
     Dosage: DAILY DOSE: 2 MG
     Route: 048
     Dates: start: 20171201, end: 20181102
  23. MAGNESIUM OXIDE [Concomitant]
     Active Substance: MAGNESIUM OXIDE
     Indication: Product used for unknown indication
     Dosage: 600 MG/DAY
     Route: 048
     Dates: start: 20180523
  24. GABAPENTIN [Concomitant]
     Active Substance: GABAPENTIN
     Indication: Product used for unknown indication
     Dosage: DAILY DOSE: 160 MG
     Route: 048
     Dates: start: 20190422
  25. TIZANIDINE HYDROCHLORIDE [Concomitant]
     Active Substance: TIZANIDINE HYDROCHLORIDE
     Indication: Product used for unknown indication
     Dosage: DAILY DOSE: 1.7 MG
     Route: 065
     Dates: start: 20190124
  26. ARIPIPRAZOLE [Concomitant]
     Active Substance: ARIPIPRAZOLE
     Indication: Product used for unknown indication
     Dosage: DAILY DOSE: 3.4 MG
     Route: 048
     Dates: start: 20190124
  27. CARBOCYSTEINE [Concomitant]
     Active Substance: CARBOCYSTEINE
     Indication: Product used for unknown indication
     Dosage: DAILY DOSE: 250 MG
     Route: 048
     Dates: start: 20181107
  28. TRIHEXYPHENIDYL HYDROCHLORIDE [Concomitant]
     Active Substance: TRIHEXYPHENIDYL HYDROCHLORIDE
     Indication: Product used for unknown indication
     Dosage: DAILY DOSE: 1.6 MG
     Route: 048
     Dates: start: 20181121

REACTIONS (4)
  - Secretion discharge [Recovering/Resolving]
  - Secretion discharge [Not Recovered/Not Resolved]
  - Hyperuricaemia [Recovering/Resolving]
  - Sedation [Unknown]

NARRATIVE: CASE EVENT DATE: 20180923
